FAERS Safety Report 5503324-X (Version None)
Quarter: 2007Q4

REPORT INFORMATION
  Report Type: 
  Country: None (occurrence: None)
  Receive Date: 20071031
  Receipt Date: 20071010
  Transmission Date: 20080405
  Serious: No
  Sender: FDA-Public Use
  Company Number: US-BOEHRINGER INGELHEIM PHARMACEUTICALS, INC.-2007-BP-22524BP

PATIENT
  Age: 59 Year
  Sex: Female

DRUGS (1)
  1. MIRAPEX [Suspect]
     Indication: RESTLESS LEGS SYNDROME
     Route: 048
     Dates: start: 20070821

REACTIONS (5)
  - ARTHRALGIA [None]
  - DIARRHOEA [None]
  - HYPOAESTHESIA [None]
  - NAUSEA [None]
  - VOMITING [None]
